FAERS Safety Report 20594578 (Version 6)
Quarter: 2024Q4

REPORT INFORMATION
  Report Type: Spontaneous
  Country: US (occurrence: US)
  Receive Date: 20220315
  Receipt Date: 20241018
  Transmission Date: 20250114
  Serious: No
  Sender: ROCHE
  Company Number: US-ROCHE-2808125

PATIENT
  Age: 62 Year
  Sex: Female

DRUGS (3)
  1. XOLAIR [Suspect]
     Active Substance: OMALIZUMAB
     Indication: Asthma
     Route: 058
     Dates: start: 20200105
  2. XOLAIR [Suspect]
     Active Substance: OMALIZUMAB
     Indication: Immune system disorder
     Route: 058
     Dates: start: 202001
  3. XOLAIR [Suspect]
     Active Substance: OMALIZUMAB
     Indication: Asthma

REACTIONS (10)
  - Ill-defined disorder [Recovered/Resolved]
  - Nasopharyngitis [Unknown]
  - Headache [Unknown]
  - Arthralgia [Unknown]
  - Bronchitis [Unknown]
  - Abdominal distension [Unknown]
  - Swelling [Recovered/Resolved]
  - Fatigue [Unknown]
  - Eye pruritus [Unknown]
  - Insomnia [Unknown]

NARRATIVE: CASE EVENT DATE: 20220708
